FAERS Safety Report 11234997 (Version 5)
Quarter: 2016Q2

REPORT INFORMATION
  Report Type: Report from Study
  Country: IL (occurrence: IL)
  Receive Date: 20150702
  Receipt Date: 20160526
  Transmission Date: 20160815
  Serious: Yes (Other)
  Sender: FDA-Public Use
  Company Number: IL-ABBVIE-15P-082-1415730-00

PATIENT
  Sex: Female

DRUGS (9)
  1. DISOTHIAZIDE [Concomitant]
     Indication: HYPERTENSION
     Dates: start: 20150525
  2. NORVASC [Concomitant]
     Active Substance: AMLODIPINE BESYLATE
     Indication: HYPERTENSION
     Route: 048
     Dates: end: 20150525
  3. LOSARTAN POTASSIUM AND HYDROCHLOROTHIAZIDE [Concomitant]
     Active Substance: HYDROCHLOROTHIAZIDE\LOSARTAN POTASSIUM
     Indication: HYPERTENSION
     Route: 048
  4. ALPHAGAN P [Concomitant]
     Active Substance: BRIMONIDINE TARTRATE
     Indication: GLAUCOMA
  5. VIEKIRAX [Suspect]
     Active Substance: OMBITASVIR\PARITAPREVIR\RITONAVIR
     Indication: HEPATITIS C
     Dosage: 2 TAB PER DAY
     Route: 048
     Dates: start: 20150510
  6. SIMVASTATIN. [Concomitant]
     Active Substance: SIMVASTATIN
     Indication: HYPERTENSION
     Route: 048
     Dates: start: 2005
  7. VABEN [Concomitant]
     Active Substance: OXAZEPAM
     Indication: SLEEP DISORDER
     Route: 048
  8. MAGNESIUM [Concomitant]
     Active Substance: MAGNESIUM
     Indication: PRODUCT USED FOR UNKNOWN INDICATION
     Route: 048
  9. EXVIERA [Suspect]
     Active Substance: DASABUVIR
     Indication: HEPATITIS C
     Dosage: 2 TAB PER DAY
     Route: 048
     Dates: start: 20150510

REACTIONS (4)
  - Pain [Unknown]
  - Fatigue [Unknown]
  - Asthenia [Unknown]
  - Activities of daily living impaired [Unknown]
